FAERS Safety Report 24396162 (Version 1)
Quarter: 2024Q4

REPORT INFORMATION
  Report Type: Spontaneous
  Country: US (occurrence: US)
  Receive Date: 20241004
  Receipt Date: 20241004
  Transmission Date: 20250115
  Serious: No
  Sender: PHARMACOSMOS
  Company Number: US-NEBO-668724

PATIENT
  Age: 22 Year
  Sex: Female
  Weight: 47 kg

DRUGS (2)
  1. PROGESTERONE [Concomitant]
     Active Substance: PROGESTERONE
  2. MONOFERRIC [Suspect]
     Active Substance: FERRIC DERISOMALTOSE
     Indication: Heavy menstrual bleeding
     Dates: start: 20240905, end: 20240905

REACTIONS (3)
  - Fishbane reaction [Recovered/Resolved]
  - Hypertension [Recovered/Resolved]
  - Cough [Recovered/Resolved]

NARRATIVE: CASE EVENT DATE: 20240905
